FAERS Safety Report 24016662 (Version 1)
Quarter: 2024Q2

REPORT INFORMATION
  Report Type: Report from Study
  Country: US (occurrence: US)
  Receive Date: 20240626
  Receipt Date: 20240626
  Transmission Date: 20240715
  Serious: Yes (Death)
  Sender: FDA-Public Use
  Company Number: US-ABBVIE-5814265

PATIENT
  Age: 79 Year
  Sex: Male
  Weight: 99.79 kg

DRUGS (1)
  1. CREON [Suspect]
     Active Substance: PANCRELIPASE AMYLASE\PANCRELIPASE LIPASE\PANCRELIPASE PROTEASE
     Indication: Pancreatic failure
     Dosage: FORM STRENGTH: 36000 UNIT?FREQUENCY: 1 TO 2 CAPSULE PER MEAL
     Route: 048
     Dates: start: 2023, end: 20240609

REACTIONS (3)
  - Cerebrovascular accident [Fatal]
  - Malaise [Not Recovered/Not Resolved]
  - Dizziness [Not Recovered/Not Resolved]

NARRATIVE: CASE EVENT DATE: 20240609
